FAERS Safety Report 10590367 (Version 1)
Quarter: 2014Q4

REPORT INFORMATION
  Report Type: Other
  Country: CA (occurrence: CA)
  Receive Date: 20141118
  Receipt Date: 20141118
  Transmission Date: 20150529
  Serious: Yes (Other)
  Sender: FDA-Public Use
  Company Number: CA-MYLANLABS-2014M1010809

PATIENT

DRUGS (16)
  1. MAVIK [Suspect]
     Active Substance: TRANDOLAPRIL
     Dosage: 2 MG, QD
  2. CLARITHROMYCIN. [Suspect]
     Active Substance: CLARITHROMYCIN
     Dosage: 100 MG, QD
  3. ROSUVASTATIN CALCIUM. [Suspect]
     Active Substance: ROSUVASTATIN CALCIUM
     Dosage: 20 MG, QD
  4. DOMPERIDONE [Suspect]
     Active Substance: DOMPERIDONE
     Dosage: 10 MG, BID
  5. STELARA [Suspect]
     Active Substance: USTEKINUMAB
  6. ATENOLOL. [Suspect]
     Active Substance: ATENOLOL
     Dosage: 50 MG, QD
  7. EZETROL [Suspect]
     Active Substance: EZETIMIBE
     Dosage: 10 MG, QD
  8. MONTELUKAST SODIUM. [Suspect]
     Active Substance: MONTELUKAST SODIUM
  9. PANTOPRAZOLE [Suspect]
     Active Substance: PANTOPRAZOLE SODIUM
     Dosage: 40 MG, QD
  10. SULCRATE [Suspect]
     Active Substance: SUCRALFATE
     Dosage: 1000 MG, BID
  11. ALVESCO [Suspect]
     Active Substance: CICLESONIDE
     Dosage: 400 ?G, UNK
  12. AERIUS [Suspect]
     Active Substance: DESLORATADINE
     Dosage: 5 MG, QD
     Route: 048
  13. ECOTRIN [Suspect]
     Active Substance: ASPIRIN
     Dosage: UNK, QD
  14. DETROL LA [Suspect]
     Active Substance: TOLTERODINE TARTRATE
     Dosage: 4 MG, QD
  15. CLOPIDOGREL BISULFATE. [Suspect]
     Active Substance: CLOPIDOGREL BISULFATE
     Dosage: 75 MG, QD
  16. IMIPRAMINE [Suspect]
     Active Substance: IMIPRAMINE
     Dosage: 25 MG, BID

REACTIONS (3)
  - Hallucination, auditory [Not Recovered/Not Resolved]
  - Psychotic disorder [Not Recovered/Not Resolved]
  - Paranoia [Not Recovered/Not Resolved]
